FAERS Safety Report 8580224-2 (Version None)
Quarter: 2012Q3

REPORT INFORMATION
  Report Type: 
  Country: None (occurrence: None)
  Receive Date: 20120808
  Receipt Date: 20120801
  Transmission Date: 20120928
  Serious: Yes (Hospitalization)
  Sender: FDA-Public Use
  Company Number: BR-PFIZER INC-2012187841

PATIENT
  Age: 60 Year
  Sex: Male

DRUGS (5)
  1. DIOVAN [Concomitant]
     Indication: BLOOD PRESSURE
     Dosage: UNK
     Dates: start: 20020801
  2. VIAGRA [Suspect]
     Indication: PROSTATIC DISORDER
     Dosage: UNK
     Dates: start: 20091126
  3. CELEBREX [Suspect]
     Indication: SPINAL DISORDER
     Dosage: 200 MG, 2X/DAY
     Dates: start: 20040801
  4. PANTOPRAZOLE [Concomitant]
     Indication: GASTROOESOPHAGEAL REFLUX DISEASE
     Dosage: UNK
     Dates: start: 20100801
  5. ZELMAC [Concomitant]
     Indication: REFLUX GASTRITIS
     Dosage: UNK
     Dates: start: 20040801

REACTIONS (2)
  - PROSTATIC DISORDER [None]
  - OFF LABEL USE [None]
